FAERS Safety Report 22316144 (Version 2)
Quarter: 2023Q2

REPORT INFORMATION
  Report Type: Report from Study
  Country: CA (occurrence: CA)
  Receive Date: 20230512
  Receipt Date: 20230616
  Transmission Date: 20230722
  Serious: No
  Sender: FDA-Public Use
  Company Number: CA-JNJFOC-20230513027

PATIENT
  Age: 76 Year
  Sex: Female
  Weight: 80.812 kg

DRUGS (2)
  1. STELARA [Suspect]
     Active Substance: USTEKINUMAB
     Indication: Crohn^s disease
     Dosage: EXPIRY DATE: JUN-2025
     Route: 058
     Dates: start: 202204
  2. STELARA [Suspect]
     Active Substance: USTEKINUMAB

REACTIONS (3)
  - Inappropriate schedule of product administration [Unknown]
  - Accidental exposure to product [Unknown]
  - Needle issue [Unknown]

NARRATIVE: CASE EVENT DATE: 20230504
